FAERS Safety Report 6598654-7 (Version None)
Quarter: 2010Q1

REPORT INFORMATION
  Report Type: 
  Country: None (occurrence: None)
  Receive Date: 20100224
  Receipt Date: 20100215
  Transmission Date: 20100710
  Serious: Yes (Other)
  Sender: FDA-Public Use
  Company Number: FR-JNJFOC-20100206313

PATIENT
  Age: 55 Year
  Sex: Male

DRUGS (12)
  1. TAVANIC [Suspect]
     Indication: LUNG DISORDER
     Route: 048
  2. TEMESTA [Suspect]
     Indication: DRUG USE FOR UNKNOWN INDICATION
     Route: 048
  3. TEMESTA [Suspect]
     Route: 048
  4. INSULIN ZINC PROTAMINE INJECTION [Concomitant]
     Route: 065
  5. AMOXICILLIN AND CLAVULANATE POTASSIUM [Concomitant]
     Route: 065
  6. PERFALGAN [Concomitant]
     Route: 065
  7. TPN [Concomitant]
     Route: 065
  8. KEPPRA [Concomitant]
     Route: 065
  9. LOXEN [Concomitant]
     Route: 065
  10. INSULIN HUMAN INJECTION [Concomitant]
     Route: 065
  11. LOVENOX [Concomitant]
     Route: 065
  12. ISOPHANE [Concomitant]
     Route: 065

REACTIONS (3)
  - GRAND MAL CONVULSION [None]
  - MALAISE [None]
  - WITHDRAWAL SYNDROME [None]
